FAERS Safety Report 5384242-7 (Version None)
Quarter: 2007Q3

REPORT INFORMATION
  Report Type: 
  Country: None (occurrence: None)
  Receive Date: 20070710
  Receipt Date: 20060725
  Transmission Date: 20080115
  Serious: Yes (Disabling)
  Sender: FDA-Public Use
  Company Number: 2006-00539

PATIENT
  Age: 68 Year
  Sex: Female
  Weight: 75.3 kg

DRUGS (14)
  1. VELCADE [Suspect]
     Indication: MULTIPLE MYELOMA
     Dosage: 1.30 MG/M2, 0.70 MG/M2
     Dates: start: 20060306, end: 20060420
  2. VELCADE [Suspect]
     Indication: MULTIPLE MYELOMA
     Dosage: 1.30 MG/M2, 0.70 MG/M2
     Dates: start: 20060420, end: 20060427
  3. DECADRON [Concomitant]
  4. ANZEMET [Concomitant]
  5. GABAPENTIN [Concomitant]
  6. DILACOR XR (DILTIAZEM HYDROCHLORIDE) [Concomitant]
  7. PREVACID [Concomitant]
  8. ZELNORM [Concomitant]
  9. FLUCONAZOLE [Concomitant]
  10. BACTRIM [Concomitant]
  11. AMBIEN [Concomitant]
  12. CENTRUM SILVER (TOCOPHERYL ACETATE, CALCIUM, ZINC, MINERALS NOS, VITAM [Concomitant]
  13. VITAMIN B6 [Concomitant]
  14. ACETAMINOPHEN AND OXYCODONE HCL [Concomitant]

REACTIONS (2)
  - HICCUPS [None]
  - NEUROPATHY PERIPHERAL [None]
